FAERS Safety Report 9204290 (Version 1)
Quarter: 2013Q2

REPORT INFORMATION
  Report Type: Spontaneous
  Country: SE (occurrence: SE)
  Receive Date: 20130402
  Receipt Date: 20130402
  Transmission Date: 20140414
  Serious: Yes (Hospitalization)
  Sender: FDA-Public Use
  Company Number: SE-BAYER-2013-038014

PATIENT
  Age: 22 Year
  Sex: Female

DRUGS (2)
  1. YAZ [Suspect]
     Indication: DYSMENORRHOEA
     Dosage: 0,02MG/3MG
     Dates: start: 20120813, end: 20121107
  2. CIPRALEX [Concomitant]

REACTIONS (3)
  - Tachycardia [Not Recovered/Not Resolved]
  - Hypotension [Unknown]
  - Pulmonary embolism [Not Recovered/Not Resolved]
